FAERS Safety Report 21209965 (Version 3)
Quarter: 2022Q4

REPORT INFORMATION
  Report Type: Report from Study
  Country: US (occurrence: US)
  Receive Date: 20220813
  Receipt Date: 20221213
  Transmission Date: 20230113
  Serious: No
  Sender: FDA-Public Use
  Company Number: US-NOVARTISTESTPH-NVSC2022US183955

PATIENT
  Sex: Female

DRUGS (1)
  1. KESIMPTA [Suspect]
     Active Substance: OFATUMUMAB
     Indication: Product used for unknown indication
     Dosage: UNK
     Route: 065

REACTIONS (8)
  - Hyperhidrosis [Unknown]
  - Illness [Unknown]
  - Breast tenderness [Unknown]
  - Weight increased [Unknown]
  - Respiratory disorder [Unknown]
  - Sinus disorder [Unknown]
  - Chills [Unknown]
  - Hypersensitivity [Unknown]
